FAERS Safety Report 9665003 (Version 2)
Quarter: 2014Q1

REPORT INFORMATION
  Report Type: Spontaneous
  Country: US (occurrence: US)
  Receive Date: 20131101
  Receipt Date: 20140113
  Transmission Date: 20141002
  Serious: Yes (Death, Hospitalization)
  Sender: FDA-Public Use
  Company Number: US-CELGENEUS-163-POMAL-13105601

PATIENT
  Sex: Female

DRUGS (31)
  1. POMALYST [Suspect]
     Indication: PLASMA CELL MYELOMA
     Dosage: 3 MILLIGRAM
     Route: 048
     Dates: start: 20130920, end: 20130926
  2. LASIX [Concomitant]
     Indication: PRODUCT USED FOR UNKNOWN INDICATION
     Route: 048
  3. LASIX [Concomitant]
     Dosage: 40 MILLIGRAM
     Route: 041
     Dates: start: 201309
  4. LYRICA [Concomitant]
     Indication: PRODUCT USED FOR UNKNOWN INDICATION
     Route: 048
  5. LYRICA [Concomitant]
     Dosage: 150 MILLIGRAM
     Route: 048
  6. SYNTHROID [Concomitant]
     Indication: PRODUCT USED FOR UNKNOWN INDICATION
     Route: 065
  7. SYNTHROID [Concomitant]
     Dosage: 125 MICROGRAM
     Route: 065
  8. ACYCLOVIR [Concomitant]
     Indication: PRODUCT USED FOR UNKNOWN INDICATION
     Route: 048
  9. ACYCLOVIR [Concomitant]
     Dosage: 2400 MILLIGRAM
     Route: 048
  10. WELLBUTRIN [Concomitant]
     Indication: PRODUCT USED FOR UNKNOWN INDICATION
     Route: 065
  11. WELLBUTRIN [Concomitant]
     Dosage: 150 MILLIGRAM
     Route: 048
  12. ADVAIR DISKUS [Concomitant]
     Indication: PRODUCT USED FOR UNKNOWN INDICATION
     Dosage: 100 - 50
     Route: 065
  13. PROZAC [Concomitant]
     Indication: PRODUCT USED FOR UNKNOWN INDICATION
     Route: 048
  14. ASPIRIN [Concomitant]
     Indication: PRODUCT USED FOR UNKNOWN INDICATION
     Dosage: 81 MILLIGRAM
     Route: 048
  15. POTASSIUM [Concomitant]
     Indication: PRODUCT USED FOR UNKNOWN INDICATION
     Route: 048
  16. SENNA [Concomitant]
     Indication: CONSTIPATION
     Dosage: 17.2 MILLIGRAM
     Route: 048
  17. POTASSIUM CHLORIDE [Concomitant]
     Indication: PRODUCT USED FOR UNKNOWN INDICATION
     Dosage: 40 MILLIEQUIVALENTS
     Route: 048
  18. DOCUSATE SODIUM [Concomitant]
     Indication: PRODUCT USED FOR UNKNOWN INDICATION
     Dosage: 200 MILLIGRAM
     Route: 048
  19. FLUOXETINE [Concomitant]
     Indication: PRODUCT USED FOR UNKNOWN INDICATION
     Dosage: 10 MILLIGRAM
     Route: 065
  20. FLUTICASONE-SALMETEROL DISKUS [Concomitant]
     Indication: PRODUCT USED FOR UNKNOWN INDICATION
     Dosage: 500/50
     Route: 055
  21. LEVOTHYROXINE SODIUM [Concomitant]
     Indication: PRODUCT USED FOR UNKNOWN INDICATION
     Dosage: 125 MICROGRAM
     Route: 048
  22. ALBUTEROL [Concomitant]
     Indication: DYSPNOEA
     Dosage: 4.98 PERCENT
     Route: 055
  23. ALBUTEROL [Concomitant]
     Indication: WHEEZING
     Dosage: 2 PUFFS
     Route: 055
  24. CYANOCOBALAMIN [Concomitant]
     Indication: PRODUCT USED FOR UNKNOWN INDICATION
     Dosage: 250 MICROGRAM
     Route: 055
  25. ONDANSETRON [Concomitant]
     Indication: NAUSEA
     Dosage: 12 MILLIGRAM
     Route: 048
  26. MAGNESIUM OXIDE [Concomitant]
     Indication: PRODUCT USED FOR UNKNOWN INDICATION
     Dosage: 400 MILLIGRAM
     Route: 048
  27. DEXAMETHASONE [Concomitant]
     Indication: PRODUCT USED FOR UNKNOWN INDICATION
     Route: 048
  28. OXYGEN [Concomitant]
     Indication: PRODUCT USED FOR UNKNOWN INDICATION
     Route: 065
     Dates: start: 201309, end: 2013
  29. BORTEZOMIB [Concomitant]
     Indication: BLOOD IMMUNOGLOBULIN A INCREASED
     Route: 065
     Dates: start: 201307, end: 201308
  30. VANCOMYCIN [Concomitant]
     Indication: PNEUMONIA
     Route: 065
     Dates: start: 201309, end: 2013
  31. CEFEPIME [Concomitant]
     Indication: PNEUMONIA
     Route: 065
     Dates: start: 201309, end: 2013

REACTIONS (4)
  - Respiratory failure [Fatal]
  - Plasma cell myeloma [Fatal]
  - Cardiac failure congestive [Unknown]
  - Lobar pneumonia [Unknown]
